FAERS Safety Report 6538548-6 (Version None)
Quarter: 2010Q1

REPORT INFORMATION
  Report Type: 
  Country: None (occurrence: None)
  Receive Date: 20100113
  Receipt Date: 20100113
  Transmission Date: 20100710
  Serious: Yes (Life-Threatening, Hospitalization)
  Sender: FDA-Public Use
  Company Number: None

PATIENT
  Age: 53 Year
  Sex: Female

DRUGS (1)
  1. REZULIN [Suspect]
     Indication: DIABETES MELLITUS
     Dosage: ORAL 047
     Route: 048

REACTIONS (7)
  - ARTHRALGIA [None]
  - COAGULOPATHY [None]
  - ENCEPHALOPATHY [None]
  - JAUNDICE [None]
  - LIVER TRANSPLANT [None]
  - MALAISE [None]
  - NAUSEA [None]
